FAERS Safety Report 18054769 (Version 1)
Quarter: 2020Q3

REPORT INFORMATION
  Report Type: Spontaneous
  Country: US (occurrence: US)
  Receive Date: 20200721
  Receipt Date: 20200721
  Transmission Date: 20201103
  Serious: No
  Sender: FDA-Public Use
  Company Number: None

PATIENT
  Age: 36 Year
  Sex: Male
  Weight: 95.71 kg

DRUGS (1)
  1. TOLVAPTAN (TOLVAPTAN 15MG X 7/45MG X 7 TAB,DOSEPACK,14) [Suspect]
     Active Substance: TOLVAPTAN
     Indication: CONGENITAL CYSTIC KIDNEY DISEASE
     Dosage: ?          OTHER FREQUENCY:AM;?
     Route: 048
     Dates: start: 20200212, end: 20200323

REACTIONS (3)
  - Diarrhoea [None]
  - Nausea [None]
  - Vomiting [None]

NARRATIVE: CASE EVENT DATE: 20200323
